FAERS Safety Report 6787096-7 (Version None)
Quarter: 2010Q2

REPORT INFORMATION
  Report Type: 
  Country: None (occurrence: None)
  Receive Date: 20100623
  Receipt Date: 20100614
  Transmission Date: 20101027
  Serious: Yes (Hospitalization)
  Sender: FDA-Public Use
  Company Number: TR-ABBOTT-10P-161-0651296-00

PATIENT
  Age: 18 Year
  Sex: Male
  Weight: 60 kg

DRUGS (4)
  1. TARKA [Suspect]
     Indication: SUICIDE ATTEMPT
     Dosage: 12 X 4/240MG
     Route: 048
     Dates: start: 20100614, end: 20100614
  2. OXYGEN [Concomitant]
     Indication: RESPIRATION ABNORMAL
     Route: 048
     Dates: start: 20100614
  3. IV FLUID REPLACEMENT [Concomitant]
     Indication: FLUID REPLACEMENT
     Route: 042
     Dates: start: 20100614
  4. CARBON [Concomitant]
     Indication: DRUG USE FOR UNKNOWN INDICATION
     Route: 048
     Dates: start: 20100614

REACTIONS (2)
  - LOSS OF CONSCIOUSNESS [None]
  - SUICIDE ATTEMPT [None]
